FAERS Safety Report 15695451 (Version 1)
Quarter: 2018Q4

REPORT INFORMATION
  Report Type: Spontaneous
  Country: US (occurrence: US)
  Receive Date: 20181206
  Receipt Date: 20181206
  Transmission Date: 20190205
  Serious: Yes (Other)
  Sender: FDA-Public Use
  Company Number: US-ELI_LILLY_AND_COMPANY-US201811013357

PATIENT
  Age: 83 Year
  Sex: Female

DRUGS (4)
  1. LANTUS [Suspect]
     Active Substance: INSULIN GLARGINE
     Indication: TYPE 2 DIABETES MELLITUS
     Dosage: 46 U, DAILY (AT BEDTIME)
     Route: 058
     Dates: start: 2013
  2. HUMALOG [Suspect]
     Active Substance: INSULIN LISPRO
     Indication: TYPE 2 DIABETES MELLITUS
     Dosage: 24 U, BID
     Route: 065
  3. LANTUS [Suspect]
     Active Substance: INSULIN GLARGINE
     Dosage: 40 U, DAILY (AT BEDTIME)
     Route: 058
     Dates: start: 201808
  4. HUMALOG [Suspect]
     Active Substance: INSULIN LISPRO
     Dosage: 26 U, DAILY
     Route: 065

REACTIONS (2)
  - Breast pain [Unknown]
  - Breast mass [Unknown]
